FAERS Safety Report 12822611 (Version 1)
Quarter: 2016Q4

REPORT INFORMATION
  Report Type: Spontaneous
  Country: US (occurrence: US)
  Receive Date: 20161007
  Receipt Date: 20161007
  Transmission Date: 20170207
  Serious: Yes (Life-Threatening)
  Sender: FDA-Public Use
  Company Number: US-FRESENIUS KABI-FK201607448

PATIENT
  Age: 64 Year
  Sex: Male

DRUGS (2)
  1. HEPARIN SODIUM (MANUFACTURER UNKNOWN) [Suspect]
     Active Substance: HEPARIN SODIUM
     Indication: ANTICOAGULANT THERAPY
     Route: 042
  2. HEPARIN SODIUM (MANUFACTURER UNKNOWN) [Suspect]
     Active Substance: HEPARIN SODIUM
     Route: 065

REACTIONS (3)
  - Heparin-induced thrombocytopenia [Recovered/Resolved]
  - Pulseless electrical activity [Recovered/Resolved]
  - Anaphylactoid reaction [Recovered/Resolved]
